FAERS Safety Report 17325532 (Version 2)
Quarter: 2020Q1

REPORT INFORMATION
  Report Type: Spontaneous
  Country: CN (occurrence: CN)
  Receive Date: 20200127
  Receipt Date: 20200203
  Transmission Date: 20200409
  Serious: Yes (Hospitalization)
  Sender: FDA-Public Use
  Company Number: CN-PFIZER INC-2020032713

PATIENT
  Age: 63 Year
  Sex: Female
  Weight: 52 kg

DRUGS (1)
  1. LYRICA [Suspect]
     Active Substance: PREGABALIN
     Indication: FASCIITIS
     Dosage: 75 MG, 2X/DAY
     Route: 048
     Dates: start: 20200117, end: 20200120

REACTIONS (3)
  - Off label use [Unknown]
  - Palpitations [Recovering/Resolving]
  - Product use in unapproved indication [Unknown]

NARRATIVE: CASE EVENT DATE: 20200120
